FAERS Safety Report 8410969-6 (Version None)
Quarter: 2012Q2

REPORT INFORMATION
  Report Type: 
  Country: None (occurrence: None)
  Receive Date: 20120605
  Receipt Date: 20120525
  Transmission Date: 20120825
  Serious: Yes (Other)
  Sender: FDA-Public Use
  Company Number: US-SANOFI-AVENTIS-2012SA037897

PATIENT
  Sex: Male

DRUGS (2)
  1. PLAVIX [Suspect]
     Dates: end: 20120501
  2. ASPIRIN [Concomitant]
     Dates: end: 20120501

REACTIONS (1)
  - HERNIA [None]
